FAERS Safety Report 15042938 (Version 1)
Quarter: 2018Q2

REPORT INFORMATION
  Report Type: Spontaneous
  Country: PL (occurrence: PL)
  Receive Date: 20180621
  Receipt Date: 20180621
  Transmission Date: 20180711
  Serious: Yes (Other)
  Sender: FDA-Public Use
  Company Number: PL-PFIZER INC-2018246050

PATIENT
  Age: 58 Year
  Sex: Female

DRUGS (3)
  1. CARBOPLATIN. [Suspect]
     Active Substance: CARBOPLATIN
     Dosage: UNK (6 AUC, THEN 5 AUC)
     Route: 065
     Dates: start: 201706
  2. PACLITAXEL. [Suspect]
     Active Substance: PACLITAXEL
     Dosage: 135 MG/M2, UNK
     Route: 065
     Dates: start: 201706
  3. AVASTIN [Suspect]
     Active Substance: BEVACIZUMAB
     Dosage: 7.5 MG/KG, UNK
     Route: 065
     Dates: start: 201706

REACTIONS (12)
  - Anxiety [Unknown]
  - Tearfulness [Unknown]
  - Bone pain [Unknown]
  - Asthenia [Unknown]
  - Arthralgia [Unknown]
  - Blood pressure increased [Unknown]
  - Thrombocytopenia [Recovered/Resolved]
  - Restlessness [Unknown]
  - Vomiting [Unknown]
  - Diarrhoea [Unknown]
  - Depressed mood [Unknown]
  - Anaemia [Unknown]
